FAERS Safety Report 7029001-4 (Version None)
Quarter: 2010Q4

REPORT INFORMATION
  Report Type: 
  Country: None (occurrence: None)
  Receive Date: 20101005
  Receipt Date: 20100930
  Transmission Date: 20110411
  Serious: Yes (Other)
  Sender: FDA-Public Use
  Company Number: A0884236A

PATIENT
  Age: 74 Year
  Sex: Female

DRUGS (7)
  1. FLOVENT [Suspect]
     Indication: ASTHMA
     Dosage: 2PUFF TWICE PER DAY
     Route: 055
     Dates: start: 20100917
  2. NEURONTIN [Concomitant]
  3. ZOLOFT [Concomitant]
  4. STOOL SOFTENER [Concomitant]
  5. LASIX [Concomitant]
  6. ASPIRIN [Concomitant]
  7. SEREVENT [Concomitant]

REACTIONS (3)
  - ASTHMA [None]
  - CONVULSION [None]
  - DYSPNOEA [None]
